FAERS Safety Report 5307432-8 (Version None)
Quarter: 2007Q2

REPORT INFORMATION
  Report Type: 
  Country: None (occurrence: None)
  Receive Date: 20070425
  Receipt Date: 20070410
  Transmission Date: 20071010
  Serious: Yes (Other)
  Sender: FDA-Public Use
  Company Number: US-SHR-US-2007-003328

PATIENT
  Age: 39 Year
  Sex: Female
  Weight: 65.76 kg

DRUGS (16)
  1. BETASERON [Suspect]
     Indication: RELAPSING-REMITTING MULTIPLE SCLEROSIS
     Dosage: 8 MIU, EVERY 2D
     Route: 058
     Dates: start: 20040605
  2. BACLOFEN [Concomitant]
     Dosage: 40 MG, 3X/DAY
  3. BACLOFEN [Concomitant]
     Dosage: 20 MG, 1X/DAY
  4. NEURONTIN [Concomitant]
     Dosage: 300 MG, 1X/DAY
  5. PROZAC [Concomitant]
     Dosage: 20 MG, 1X/DAY
  6. VALIUM [Concomitant]
     Dosage: 5 MG, AS REQ'D X3
  7. ADDERALL 10 [Concomitant]
     Indication: FATIGUE
     Dosage: 20 MG, 3X/DAY
  8. MIRALAX [Concomitant]
     Dosage: 17 G, 1X/DAY
  9. ASACOL [Concomitant]
     Dosage: 2400 MG, UNK
  10. FOLIC ACID [Concomitant]
     Dosage: 1 MG, 1X/DAY
     Dates: start: 20070122
  11. METHOTREXATE [Concomitant]
     Indication: CROHN'S DISEASE
     Dosage: 10 MG, 4X/WEEK
     Route: 048
     Dates: start: 20070122
  12. VITAMIN CAP [Concomitant]
     Dosage: UNK, 1X/DAY
  13. CANASA [Concomitant]
     Dosage: 1000 MG, 1X/DAY
  14. KRISTALOSE [Concomitant]
  15. CALCIUM [Concomitant]
     Dosage: 600 MG, 2X/DAY
     Route: 048
  16. VITAMIN D [Concomitant]
     Indication: VITAMIN SUPPLEMENTATION
     Dosage: 1000 - 1400 IU, 1X/DAY

REACTIONS (26)
  - ANTINEUTROPHIL CYTOPLASMIC ANTIBODY POSITIVE [None]
  - ANTINUCLEAR ANTIBODY POSITIVE [None]
  - ARTHRALGIA [None]
  - ARTHRITIS ENTEROPATHIC [None]
  - BACTERIA URINE IDENTIFIED [None]
  - DRY MOUTH [None]
  - EUSTACHIAN TUBE DYSFUNCTION [None]
  - FATIGUE [None]
  - FIBROMYALGIA [None]
  - HEADACHE [None]
  - JOINT STIFFNESS [None]
  - JOINT SWELLING [None]
  - LEUKOPENIA [None]
  - MOUTH ULCERATION [None]
  - MULTIPLE SCLEROSIS [None]
  - NODAL OSTEOARTHRITIS [None]
  - PHOTOSENSITIVITY REACTION [None]
  - PYREXIA [None]
  - RHINORRHOEA [None]
  - SARCOIDOSIS [None]
  - SINUSITIS [None]
  - URTICARIA [None]
  - UTERINE POLYP [None]
  - VASCULITIS [None]
  - WEGENER'S GRANULOMATOSIS [None]
  - WEIGHT DECREASED [None]
